FAERS Safety Report 11382098 (Version 1)
Quarter: 2015Q3

REPORT INFORMATION
  Report Type: Spontaneous
  Country: US (occurrence: US)
  Receive Date: 20150811
  Receipt Date: 20150811
  Transmission Date: 20151125
  Serious: No
  Sender: FDA-Public Use
  Company Number: US-ELI_LILLY_AND_COMPANY-US200910001385

PATIENT
  Age: 39 Year
  Sex: Male

DRUGS (7)
  1. CIALIS [Suspect]
     Active Substance: TADALAFIL
     Indication: ERECTILE DYSFUNCTION
     Dosage: 5 MG, DAILY (1/D)
     Route: 065
     Dates: start: 2009
  2. DIOVAN [Concomitant]
     Active Substance: VALSARTAN
     Dosage: 80 MG, UNKNOWN
     Route: 065
  3. WELLBUTRIN [Concomitant]
     Active Substance: BUPROPION HYDROCHLORIDE
     Dosage: 37.5 MG, UNKNOWN
     Route: 065
  4. MULTIVITAMIN [Concomitant]
     Active Substance: VITAMINS
     Dosage: UNK, UNKNOWN
     Route: 065
  5. ASPIRIN. [Concomitant]
     Active Substance: ASPIRIN
     Dosage: UNK, UNKNOWN
     Route: 065
  6. ZETIA [Concomitant]
     Active Substance: EZETIMIBE
     Dosage: 10 MG, UNKNOWN
     Route: 065
  7. PRILOSEC [Concomitant]
     Active Substance: OMEPRAZOLE MAGNESIUM
     Dosage: 10 MG, UNKNOWN
     Route: 065

REACTIONS (4)
  - Constipation [Recovered/Resolved]
  - Headache [Recovered/Resolved]
  - Myalgia [Recovered/Resolved]
  - Nasal congestion [Recovered/Resolved]

NARRATIVE: CASE EVENT DATE: 200909
